FAERS Safety Report 9877223 (Version 1)
Quarter: 2014Q1

REPORT INFORMATION
  Report Type: Not Available
  Country: US (occurrence: US)
  Receive Date: 20140206
  Receipt Date: 20140206
  Transmission Date: 20141002
  Serious: Yes (Hospitalization)
  Sender: FDA-Public Use
  Company Number: US-VIROPHARMA INCORPORATED-20140127CINRY5720

PATIENT
  Age: 34 Year
  Sex: Female

DRUGS (5)
  1. CINRYZE (C1 ESTERASE INHIBITOR (HUMAN)) [Suspect]
     Indication: HEREDITARY ANGIOEDEMA
     Route: 042
  2. CINRYZE (C1 ESTERASE INHIBITOR (HUMAN)) [Suspect]
     Indication: PROPHYLAXIS
  3. ZANTAC [Concomitant]
     Indication: HEREDITARY ANGIOEDEMA
     Route: 065
  4. ZYRTEC [Concomitant]
     Indication: HEREDITARY ANGIOEDEMA
     Route: 065
  5. KLONOPIN [Concomitant]
     Indication: ANXIETY
     Dosage: UNKNOWN
     Route: 065

REACTIONS (3)
  - Pneumonia [Recovered/Resolved]
  - Hereditary angioedema [Recovered/Resolved]
  - Inappropriate schedule of drug administration [Not Recovered/Not Resolved]
